FAERS Safety Report 8662485 (Version 4)
Quarter: 2014Q2

REPORT INFORMATION
  Report Type: Spontaneous
  Country: US (occurrence: US)
  Receive Date: 20120712
  Receipt Date: 20131024
  Transmission Date: 20141212
  Serious: No
  Sender: FDA-Public Use
  Company Number: US-PFIZER INC-2012165988

PATIENT
  Age: 10 Year
  Sex: Female

DRUGS (1)
  1. DILANTIN [Suspect]
     Dosage: UNK
     Route: 048

REACTIONS (1)
  - Toxicity to various agents [Unknown]
